FAERS Safety Report 19239952 (Version 2)
Quarter: 2021Q4

REPORT INFORMATION
  Report Type: Spontaneous
  Country: IT (occurrence: IT)
  Receive Date: 20210510
  Receipt Date: 20211101
  Transmission Date: 20220303
  Serious: Yes (Other)
  Sender: FDA-Public Use
  Company Number: IT-NOVARTISPH-NVSC2021IT103160

PATIENT
  Age: 23 Year
  Sex: Female

DRUGS (2)
  1. ZOLPIDEM TARTRATE [Suspect]
     Active Substance: ZOLPIDEM TARTRATE
     Indication: Insomnia
     Dosage: 10 MG, QHS
     Route: 065
  2. ZOLPIDEM TARTRATE [Suspect]
     Active Substance: ZOLPIDEM TARTRATE
     Indication: Irregular sleep wake rhythm disorder
     Dosage: 30 MG, QD (SELF-ADMINISTERED)
     Route: 048

REACTIONS (6)
  - Drug abuse [Recovered/Resolved]
  - Disinhibition [Unknown]
  - Amnesia [Unknown]
  - Psychomotor hyperactivity [Unknown]
  - Euphoric mood [Unknown]
  - Disturbance in social behaviour [Unknown]
